FAERS Safety Report 24200741 (Version 3)
Quarter: 2024Q3

REPORT INFORMATION
  Report Type: Report from Study
  Country: US (occurrence: US)
  Receive Date: 20240812
  Receipt Date: 20240913
  Transmission Date: 20241017
  Serious: No
  Sender: SANDOZ
  Company Number: US-SANDOZ-SDZ2024US071515

PATIENT
  Sex: Male

DRUGS (8)
  1. OMNITROPE [Suspect]
     Active Substance: SOMATROPIN
     Dosage: 2.2 MG 2 DOSE EVERY N/A N/A
     Route: 058
     Dates: start: 20240807
  2. OMNITROPE [Suspect]
     Active Substance: SOMATROPIN
     Dosage: 2.2 MG 2 DOSE EVERY N/A N/A
     Route: 058
     Dates: start: 20240807
  3. OMNITROPE [Suspect]
     Active Substance: SOMATROPIN
     Dosage: 2.2 MG 2 DOSE EVERY N/A N/A
     Route: 058
     Dates: start: 20240807
  4. OMNITROPE [Suspect]
     Active Substance: SOMATROPIN
     Dosage: 2.2 MG 2 DOSE EVERY N/A N/A
     Route: 058
     Dates: start: 20240807
  5. OMNITROPE [Suspect]
     Active Substance: SOMATROPIN
     Indication: Product used for unknown indication
     Dosage: 2.6 MG, QD; 2.6 MG 2 DOSE EVERY N/A N/A
     Route: 058
  6. OMNITROPE [Suspect]
     Active Substance: SOMATROPIN
     Indication: Product used for unknown indication
     Dosage: 2.6 MG, QD; 2.6 MG 2 DOSE EVERY N/A N/A
     Route: 058
  7. OMNITROPE [Suspect]
     Active Substance: SOMATROPIN
     Indication: Product used for unknown indication
     Dosage: 2.6 MG, QD; 2.6 MG 2 DOSE EVERY N/A N/A
     Route: 058
  8. OMNITROPE [Suspect]
     Active Substance: SOMATROPIN
     Indication: Product used for unknown indication
     Dosage: 2.6 MG, QD; 2.6 MG 2 DOSE EVERY N/A N/A
     Route: 058

REACTIONS (5)
  - Anxiety [Unknown]
  - Incorrect dose administered by device [Unknown]
  - Device leakage [Unknown]
  - Arthralgia [Unknown]
  - Injection site haemorrhage [Recovered/Resolved]
